FAERS Safety Report 6059588-X (Version None)
Quarter: 2009Q1

REPORT INFORMATION
  Report Type: 
  Country: None (occurrence: None)
  Receive Date: 20090130
  Receipt Date: 20090120
  Transmission Date: 20090719
  Serious: Yes (Other)
  Sender: FDA-Public Use
  Company Number: US-ROCHE-609735

PATIENT
  Sex: Female
  Weight: 110.2 kg

DRUGS (1)
  1. CAPECITABINE [Suspect]
     Indication: BREAST CANCER
     Dosage: 500 MG SIX TABLETS DAILY
     Route: 065
     Dates: start: 20081025

REACTIONS (1)
  - DISEASE PROGRESSION [None]
